FAERS Safety Report 5232180-2 (Version None)
Quarter: 2007Q1

REPORT INFORMATION
  Report Type: 
  Country: None (occurrence: None)
  Receive Date: 20070205
  Receipt Date: 20070130
  Transmission Date: 20070707
  Serious: Yes (Hospitalization)
  Sender: FDA-Public Use
  Company Number: S07-USA-00476-01

PATIENT
  Age: 29 Year
  Sex: Male

DRUGS (17)
  1. LEXAPRO [Suspect]
     Indication: DEPRESSION
     Dosage: 10 MG QD PO
     Route: 048
     Dates: start: 20070111
  2. TYLENOL [Concomitant]
  3. ALBUTEROL [Concomitant]
  4. CLONIDINE [Concomitant]
  5. EPOGEN [Concomitant]
  6. FERROUS SULFATE TAB [Concomitant]
  7. ARIXTRA [Concomitant]
  8. LASIX [Concomitant]
  9. KYTRIL [Concomitant]
  10. INSULIN [Concomitant]
  11. ATIVAN [Concomitant]
  12. REGLAN [Concomitant]
  13. METOPROLOL SUCCINATE [Concomitant]
  14. PANCRELIPASE [Concomitant]
  15. POTASSIUM ACETATE [Concomitant]
  16. UNASYN [Concomitant]
  17. FENTANYL [Concomitant]

REACTIONS (1)
  - PLATELET COUNT DECREASED [None]
